FAERS Safety Report 4264797-6 (Version None)
Quarter: 2004Q1

REPORT INFORMATION
  Report Type: 
  Country: None (occurrence: None)
  Receive Date: 20040105
  Receipt Date: 20031110
  Transmission Date: 20041129
  Serious: Yes (Death)
  Sender: FDA-Public Use
  Company Number: C2003-3002.01

PATIENT
  Age: 72 Year
  Sex: Female

DRUGS (21)
  1. CLOZAPINE [Suspect]
     Dosage: 25MG Q AM, ORAL
     Route: 048
     Dates: start: 20020501
  2. CLOZAPINE [Suspect]
     Indication: SCHIZOAFFECTIVE DISORDER
     Dosage: 100MG Q AM, ORAL
     Route: 048
     Dates: start: 20020501
  3. SERTRALINE HCL [Concomitant]
  4. DONEPEZIL HCL [Concomitant]
  5. LITHIUM CARBONATE [Concomitant]
  6. ALBUTEROL SULFATE [Concomitant]
  7. NITROGLYCERIN [Concomitant]
  8. PROPOZYPHENE NAPSULATE/APAP [Concomitant]
  9. INSTANT GLUCOSE (PRN) [Concomitant]
  10. LOSARTAN [Concomitant]
  11. INSULIN [Concomitant]
  12. CLOPIDOGREL [Concomitant]
  13. ISOSORBIDE MONONITRATE [Concomitant]
  14. PRAMIPEXOLE [Concomitant]
  15. ATORVASTATIN [Concomitant]
  16. METOPROLOL [Concomitant]
  17. FUROSEMIDE [Concomitant]
  18. PREDNISONE [Concomitant]
  19. LANSOPRAZOLE [Concomitant]
  20. IPRATROPIUM BROMIDE [Concomitant]
  21. METHYLCELLULOSE [Concomitant]

REACTIONS (1)
  - PNEUMONIA [None]
